FAERS Safety Report 4317552-2 (Version None)
Quarter: 2004Q1

REPORT INFORMATION
  Report Type: 
  Country: None (occurrence: None)
  Receive Date: 20040312
  Receipt Date: 20040302
  Transmission Date: 20041129
  Serious: Yes (Other)
  Sender: FDA-Public Use
  Company Number: USA-2003-0006104

PATIENT
  Age: 66 Year
  Sex: Male
  Weight: 95.2 kg

DRUGS (17)
  1. OXYCONTIN [Suspect]
     Indication: PAIN
     Dosage: 20 MG, BID, ORAL
     Route: 048
     Dates: start: 19990717, end: 20010502
  2. ZIAC (HYDROCHLOROTHIAZIDE, BISOPROLOL, FUMARATE) TABLET [Concomitant]
  3. BENTYL (DICYCLOVERINE HYDROCHLORIDE) TABLET [Concomitant]
  4. ATIVAN [Concomitant]
  5. DECADRON (DEXAMETHASONE) INJECTABLE [Concomitant]
  6. VITAMIN B12 (CYANOCOBALAMIN) INJECTABLE [Concomitant]
  7. TYLENOL W/CODEINE NO. 4 TABLET [Concomitant]
  8. ALLOPURINOL [Concomitant]
  9. PROBENECID (PROBENECID) TABLET [Concomitant]
  10. PREVACID (LANSOPRAZOLE) TABLET [Concomitant]
  11. KENALOG (TRIAMCINOLONE ACETONIDE) CREAM [Concomitant]
  12. TAGAMET ORAL (CIMETIDINE) TABLET [Concomitant]
  13. CLONIDINE (CLONIDINE) TABLET [Concomitant]
  14. ZANTAC [Concomitant]
  15. INDOCIN TABLET [Concomitant]
  16. NITROGLYCERIN [Concomitant]
  17. LORCET-HD [Concomitant]

REACTIONS (18)
  - ANXIETY [None]
  - ASTHENIA [None]
  - BASAL CELL CARCINOMA [None]
  - BREAST MASS [None]
  - CELLULITIS [None]
  - DISEASE RECURRENCE [None]
  - DRUG DEPENDENCE [None]
  - DRUG WITHDRAWAL SYNDROME [None]
  - DYSURIA [None]
  - GASTRITIS [None]
  - GOUT [None]
  - HYPERGLYCAEMIA [None]
  - MAJOR DEPRESSION [None]
  - OTITIS EXTERNA [None]
  - PAIN [None]
  - POLLAKIURIA [None]
  - SINUSITIS [None]
  - URINARY HESITATION [None]
